FAERS Safety Report 24571127 (Version 1)
Quarter: 2024Q4

REPORT INFORMATION
  Report Type: Report from Study
  Country: ZA (occurrence: ZA)
  Receive Date: 20241101
  Receipt Date: 20241101
  Transmission Date: 20250115
  Serious: Yes (Hospitalization)
  Sender: ABBVIE
  Company Number: ZA-ABBVIE-5978686

PATIENT
  Age: 32 Year
  Sex: Female

DRUGS (1)
  1. OZURDEX [Suspect]
     Active Substance: DEXAMETHASONE
     Indication: Uveitis
     Dosage: TIME INTERVAL: AS NECESSARY: EVERY FOUR MONTHS
     Route: 050
     Dates: start: 20240625, end: 20240625

REACTIONS (1)
  - Retinal operation [Unknown]
